FAERS Safety Report 11448809 (Version 1)
Quarter: 2015Q3

REPORT INFORMATION
  Report Type: Spontaneous
  Country: FR (occurrence: FR)
  Receive Date: 20150902
  Receipt Date: 20150902
  Transmission Date: 20151125
  Serious: Yes (Hospitalization, Other)
  Sender: FDA-Public Use
  Company Number: FR-BRISTOL-MYERS SQUIBB COMPANY-BMS-2015-056704

PATIENT
  Age: 52 Year
  Sex: Female

DRUGS (1)
  1. COUMADINE [Suspect]
     Active Substance: WARFARIN SODIUM
     Indication: PRODUCT USED FOR UNKNOWN INDICATION
     Dosage: UNK
     Route: 048
     Dates: end: 20110910

REACTIONS (5)
  - Subdural haematoma evacuation [Recovered/Resolved]
  - Subdural haematoma [Recovered/Resolved]
  - Pneumonia aspiration [Recovered/Resolved]
  - Subarachnoid haemorrhage [Recovered/Resolved]
  - Cerebral haematoma [Recovered/Resolved]

NARRATIVE: CASE EVENT DATE: 20110910
